FAERS Safety Report 17109408 (Version 1)
Quarter: 2019Q4

REPORT INFORMATION
  Report Type: Report from Study
  Country: US (occurrence: US)
  Receive Date: 20191204
  Receipt Date: 20191204
  Transmission Date: 20200122
  Serious: No
  Sender: FDA-Public Use
  Company Number: US-IPSEN BIOPHARMACEUTICALS, INC.-2019-23517

PATIENT
  Sex: Female

DRUGS (1)
  1. SOMATULINE DEPOT [Suspect]
     Active Substance: LANREOTIDE ACETATE
     Indication: CARCINOID SYNDROME
     Dosage: DOSE NOT REPORTED
     Route: 065
     Dates: start: 2017

REACTIONS (10)
  - Irritable bowel syndrome [Unknown]
  - Blood glucose decreased [Unknown]
  - Fatigue [Unknown]
  - Dyspepsia [Unknown]
  - Flatulence [Unknown]
  - Chest discomfort [Unknown]
  - Injection site pain [Unknown]
  - Asthenia [Unknown]
  - Diarrhoea [Unknown]
  - Dyspnoea [Unknown]
